FAERS Safety Report 5632400-6 (Version None)
Quarter: 2008Q1

REPORT INFORMATION
  Report Type: 
  Country: None (occurrence: None)
  Receive Date: 20080220
  Receipt Date: 20080208
  Transmission Date: 20080703
  Serious: No
  Sender: FDA-Public Use
  Company Number: US-BOEHRINGER INGELHEIM GMBH, GERMANY-2008-BP-02128BP

PATIENT
  Age: 67 Year
  Sex: Male

DRUGS (4)
  1. FLOMAX [Suspect]
     Indication: BENIGN PROSTATIC HYPERPLASIA
     Route: 048
     Dates: end: 20080201
  2. DIOVAN [Concomitant]
  3. COREG [Concomitant]
  4. TOPROL [Concomitant]

REACTIONS (2)
  - BLOOD PRESSURE DECREASED [None]
  - EJACULATION FAILURE [None]
